FAERS Safety Report 17746043 (Version 1)
Quarter: 2020Q2

REPORT INFORMATION
  Report Type: Spontaneous
  Country: FR (occurrence: FR)
  Receive Date: 20200505
  Receipt Date: 20200505
  Transmission Date: 20200714
  Serious: Yes (Hospitalization)
  Sender: FDA-Public Use
  Company Number: FR-TEVA-2020-FR-1230133

PATIENT
  Age: 63 Year
  Sex: Female

DRUGS (3)
  1. DALACINE [Suspect]
     Active Substance: CLINDAMYCIN
     Indication: PROPHYLAXIS
     Dosage: UNSPECIFIED
     Route: 048
     Dates: start: 20200310, end: 20200324
  2. DALACINE [Suspect]
     Active Substance: CLINDAMYCIN
     Dosage: UNSPECIFIED
     Route: 048
     Dates: start: 20200331, end: 20200402
  3. SIMVASTATINE [Suspect]
     Active Substance: SIMVASTATIN
     Indication: HYPERCHOLESTEROLAEMIA
     Dosage: UNSPECIFIED
     Route: 048
     Dates: start: 20200131

REACTIONS (2)
  - Rash maculo-papular [Recovering/Resolving]
  - Pruritus [Recovering/Resolving]

NARRATIVE: CASE EVENT DATE: 20200402
